FAERS Safety Report 11533194 (Version 2)
Quarter: 2018Q2

REPORT INFORMATION
  Report Type: Report from Study
  Country: US (occurrence: US)
  Receive Date: 20150921
  Receipt Date: 20180412
  Transmission Date: 20180711
  Serious: Yes (Other)
  Sender: FDA-Public Use
  Company Number: US-BAYER-2015-423663

PATIENT
  Age: 50 Year
  Sex: Female

DRUGS (2)
  1. ASPIRIN. [Suspect]
     Active Substance: ASPIRIN
     Indication: IMMUNE TOLERANCE INDUCTION
     Dosage: DAY 1 40 MG, ONCE
  2. ASPIRIN. [Suspect]
     Active Substance: ASPIRIN
     Indication: IMMUNE TOLERANCE INDUCTION
     Dosage: DAY 2 81 MG, ONCE

REACTIONS (3)
  - Bronchospasm [Recovering/Resolving]
  - Aspirin-exacerbated respiratory disease [None]
  - Bronchospasm [Recovered/Resolved]
